FAERS Safety Report 4700750-3 (Version None)
Quarter: 2005Q2

REPORT INFORMATION
  Report Type: 
  Country: None (occurrence: None)
  Receive Date: 20050627
  Receipt Date: 20050608
  Transmission Date: 20051028
  Serious: Yes (Life-Threatening, Hospitalization, Disabling, Other)
  Sender: FDA-Public Use
  Company Number: 2005FR-00018

PATIENT
  Age: 59 Year
  Sex: Female
  Weight: 85 kg

DRUGS (15)
  1. ASPIRIN [Suspect]
     Indication: PROPHYLAXIS
     Dosage: 75 MG, ONCE DAILY, ORAL
     Route: 048
     Dates: start: 20050313, end: 20050508
  2. CLOPIDOGREL 75 MG [Concomitant]
  3. BUMETANIDE [Concomitant]
  4. SPIRONOLACTONE [Concomitant]
  5. ATORVASTATIN CALCIUM [Concomitant]
  6. SENNA [Concomitant]
  7. INSULIN [Concomitant]
  8. CALCICHEW D3 [Concomitant]
  9. AMITRIPTYLINE HCL [Concomitant]
  10. LANSOPRAZOLE [Concomitant]
  11. DARBEPOETIN ALFA [Concomitant]
  12. GABAPENTIN [Concomitant]
  13. NICRORANDIL [Concomitant]
  14. OMACOR [Concomitant]
  15. SODIUM BICARBONATE [Concomitant]

REACTIONS (8)
  - BRAIN COMPRESSION [None]
  - DEPRESSED LEVEL OF CONSCIOUSNESS [None]
  - HAEMATURIA [None]
  - HEADACHE [None]
  - INTRACRANIAL PRESSURE INCREASED [None]
  - LOSS OF CONSCIOUSNESS [None]
  - SUBDURAL HAEMATOMA [None]
  - VOMITING [None]
